FAERS Safety Report 18232708 (Version 1)
Quarter: 2020Q3

REPORT INFORMATION
  Report Type: Spontaneous
  Country: NZ (occurrence: NZ)
  Receive Date: 20200904
  Receipt Date: 20200904
  Transmission Date: 20201103
  Serious: Yes (Other)
  Sender: FDA-Public Use
  Company Number: NZ-ELI_LILLY_AND_COMPANY-NZ202008010283

PATIENT
  Age: 29 Year
  Sex: Male

DRUGS (3)
  1. OLANZAPINE PAMOATE 405MG [Suspect]
     Active Substance: OLANZAPINE PAMOATE
     Indication: SCHIZOPHRENIA
     Dosage: 405 MG, OTHER (ONE)
     Route: 030
     Dates: start: 20200428, end: 20200428
  2. OLANZAPINE PAMOATE 405MG [Suspect]
     Active Substance: OLANZAPINE PAMOATE
     Indication: SCHIZOPHRENIA
     Dosage: 405 MG, OTHER (ONE)
     Route: 030
     Dates: start: 20200428, end: 20200428
  3. OLANZAPINE PAMOATE 405MG [Suspect]
     Active Substance: OLANZAPINE PAMOATE
     Indication: SCHIZOPHRENIA
     Dosage: 405 MG, OTHER (ONE)
     Route: 030
     Dates: start: 20200428, end: 20200428

REACTIONS (5)
  - Sedation [Not Recovered/Not Resolved]
  - Ataxia [Not Recovered/Not Resolved]
  - Muscular weakness [Not Recovered/Not Resolved]
  - Dysarthria [Not Recovered/Not Resolved]
  - Post-injection delirium sedation syndrome [Not Recovered/Not Resolved]

NARRATIVE: CASE EVENT DATE: 20200428
